FAERS Safety Report 18413028 (Version 1)
Quarter: 2020Q4

REPORT INFORMATION
  Report Type: Spontaneous
  Country: FR (occurrence: FR)
  Receive Date: 20201021
  Receipt Date: 20201021
  Transmission Date: 20210114
  Serious: Yes (Hospitalization, Other)
  Sender: FDA-Public Use
  Company Number: FR-BRISTOL-MYERS SQUIBB COMPANY-BMS-2020-086125

PATIENT
  Age: 68 Year
  Sex: Male
  Weight: 75.8 kg

DRUGS (2)
  1. OPDIVO [Suspect]
     Active Substance: NIVOLUMAB
     Indication: RENAL NEOPLASM
     Dosage: 3 MILLIGRAM/KILOGRAM, Q2WK
     Route: 041
     Dates: start: 20200727, end: 20200817
  2. YERVOY [Suspect]
     Active Substance: IPILIMUMAB
     Indication: RENAL NEOPLASM
     Dosage: 1 MILLIGRAM/KILOGRAM, Q2WK
     Route: 041
     Dates: start: 20200727, end: 20200817

REACTIONS (2)
  - Hepatocellular injury [Recovered/Resolved]
  - Cholestasis [Recovering/Resolving]

NARRATIVE: CASE EVENT DATE: 20200821
